FAERS Safety Report 6734152-5 (Version None)
Quarter: 2010Q2

REPORT INFORMATION
  Report Type: 
  Country: None (occurrence: None)
  Receive Date: 20100520
  Receipt Date: 20100511
  Transmission Date: 20101027
  Serious: Yes (Other)
  Sender: FDA-Public Use
  Company Number: GXKR2010GB05359

PATIENT
  Age: 68 Year
  Sex: Female

DRUGS (5)
  1. NITROFURANTOIN [Suspect]
     Indication: URINARY TRACT INFECTION
     Dosage: 50 MG, QD NIGHTLY
  2. ADCAL-D3 [Concomitant]
  3. DOXAZOSIN MESYLATE [Concomitant]
  4. ALENDRONATE SODIUM [Concomitant]
  5. ACETYLSALICYLIC ACID [Concomitant]

REACTIONS (2)
  - LETHARGY [None]
  - TUBULOINTERSTITIAL NEPHRITIS [None]
